FAERS Safety Report 14124102 (Version 2)
Quarter: 2017Q4

REPORT INFORMATION
  Report Type: Spontaneous
  Country: US (occurrence: US)
  Receive Date: 20171025
  Receipt Date: 20171129
  Transmission Date: 20180321
  Serious: Yes (Other)
  Sender: FDA-Public Use
  Company Number: US-PFIZER INC-2017455386

PATIENT
  Age: 62 Year
  Sex: Female

DRUGS (1)
  1. XELJANZ [Suspect]
     Active Substance: TOFACITINIB CITRATE
     Indication: RHEUMATOID ARTHRITIS
     Dosage: 5 MG (ONE TABLET), TWICE A DAY
     Route: 048
     Dates: start: 201602

REACTIONS (9)
  - Myxoid cyst [Unknown]
  - Limb discomfort [Unknown]
  - Drug dose omission [Unknown]
  - Upper limb fracture [Unknown]
  - Joint swelling [Unknown]
  - Fall [Unknown]
  - Inflammation [Unknown]
  - Pain in extremity [Unknown]
  - Bone pain [Unknown]

NARRATIVE: CASE EVENT DATE: 2017
